FAERS Safety Report 20589486 (Version 1)
Quarter: 2022Q1

REPORT INFORMATION
  Report Type: Spontaneous
  Country: US (occurrence: None)
  Receive Date: 20220314
  Receipt Date: 20220314
  Transmission Date: 20220423
  Serious: No
  Sender: FDA-Public Use
  Company Number: None

PATIENT
  Age: 65 Year
  Sex: Male
  Weight: 87.54 kg

DRUGS (1)
  1. AMOXICILLIN\CLAVULANATE POTASSIUM [Suspect]
     Active Substance: AMOXICILLIN\CLAVULANATE POTASSIUM
     Indication: Prophylaxis
     Dosage: OTHER QUANTITY : 500/125MG;?FREQUENCY : TWICE A DAY;?
     Route: 048
     Dates: start: 20210901, end: 20210903

REACTIONS (1)
  - Angioedema [None]

NARRATIVE: CASE EVENT DATE: 20210903
